FAERS Safety Report 13522058 (Version 2)
Quarter: 2017Q2

REPORT INFORMATION
  Report Type: Spontaneous
  Country: US (occurrence: US)
  Receive Date: 20170508
  Receipt Date: 20170524
  Transmission Date: 20170830
  Serious: No
  Sender: FDA-Public Use
  Company Number: US-ASTRAZENECA-2017SE47306

PATIENT
  Age: 836 Month
  Sex: Female

DRUGS (2)
  1. BEVESPI AEROSPHERE [Suspect]
     Active Substance: FORMOTEROL FUMARATE\GLYCOPYRROLATE
     Indication: EMPHYSEMA
     Dosage: 9MCG/4.8MCG, TWO PUFFS TWICE A DAY
     Route: 055
  2. SYMBICORT [Suspect]
     Active Substance: BUDESONIDE\FORMOTEROL FUMARATE DIHYDRATE
     Dosage: UNKNOWN DOSE AND FREQUENCY UNKNOWN
     Route: 055

REACTIONS (8)
  - Cough [Not Recovered/Not Resolved]
  - Off label use [Unknown]
  - Dyspnoea [Unknown]
  - Underdose [Unknown]
  - Wrong technique in device usage process [Unknown]
  - Disturbance in attention [Unknown]
  - Product use issue [Unknown]
  - Device use issue [Unknown]

NARRATIVE: CASE EVENT DATE: 201704
